FAERS Safety Report 8085530-6 (Version None)
Quarter: 2012Q1

REPORT INFORMATION
  Report Type: 
  Country: None (occurrence: None)
  Receive Date: 20120128
  Receipt Date: 20110413
  Transmission Date: 20120608
  Serious: Yes (Other)
  Sender: FDA-Public Use
  Company Number: US-ABBOTT-11P-163-0712754-00

PATIENT
  Sex: Female
  Weight: 68.1 kg

DRUGS (11)
  1. PRAVASTATIN [Concomitant]
     Indication: BLOOD CHOLESTEROL INCREASED
  2. HUMIRA [Suspect]
     Indication: CROHN'S DISEASE
     Dates: start: 20101105, end: 20110402
  3. BACTRIM [Concomitant]
     Indication: LUNG TRANSPLANT
  4. PREDNISONE TAB [Concomitant]
     Indication: LUNG TRANSPLANT
  5. MULTI-VITAMIN [Concomitant]
     Indication: VITAMIN SUPPLEMENTATION
  6. LOVASA [Concomitant]
     Indication: BLOOD TRIGLYCERIDES INCREASED
  7. PROTONIX [Concomitant]
     Indication: GASTRIC DISORDER
  8. VALCYTE [Concomitant]
     Indication: LUNG TRANSPLANT
  9. RAPAMUNE [Concomitant]
     Indication: LUNG TRANSPLANT
  10. IRON [Concomitant]
     Indication: MINERAL SUPPLEMENTATION
  11. MYCELEX [Concomitant]
     Indication: LUNG TRANSPLANT

REACTIONS (3)
  - CROHN'S DISEASE [None]
  - SMALL INTESTINAL OBSTRUCTION [None]
  - SQUAMOUS CELL CARCINOMA [None]
